FAERS Safety Report 18357499 (Version 1)
Quarter: 2020Q4

REPORT INFORMATION
  Report Type: Spontaneous
  Country: FR (occurrence: FR)
  Receive Date: 20201008
  Receipt Date: 20201008
  Transmission Date: 20210114
  Serious: Yes (Other)
  Sender: FDA-Public Use
  Company Number: FR-AUROBINDO-AUR-APL-2020-051125

PATIENT
  Age: 70 Year
  Sex: Male
  Weight: 65 kg

DRUGS (3)
  1. DEPAKOTE [Suspect]
     Active Substance: DIVALPROEX SODIUM
     Indication: TEMPERATURE REGULATION DISORDER
     Dosage: 750 MILLIGRAM, ONCE A DAY (DECREASED TO 500 MG IN FEBRUARY 2020)
     Route: 048
     Dates: start: 201412
  2. PERINDOPRIL [Suspect]
     Active Substance: PERINDOPRIL
     Indication: HYPERTENSION
     Dosage: 2 MILLIGRAM, ONCE A DAY (INCREASED TO 4MG)
     Route: 065
     Dates: start: 201901
  3. PAROXETINE. [Suspect]
     Active Substance: PAROXETINE
     Indication: DEPRESSION
     Dosage: 50 MILLIGRAM, ONCE A DAY (1-0,5-1)
     Route: 065
     Dates: start: 201911

REACTIONS (2)
  - Camptocormia [Not Recovered/Not Resolved]
  - Osteoporosis [Not Recovered/Not Resolved]

NARRATIVE: CASE EVENT DATE: 202006
